FAERS Safety Report 23262412 (Version 2)
Quarter: 2023Q4

REPORT INFORMATION
  Report Type: Spontaneous
  Country: NL (occurrence: NL)
  Receive Date: 20231205
  Receipt Date: 20231225
  Transmission Date: 20240109
  Serious: Yes (Other)
  Sender: FDA-Public Use
  Company Number: NL-OPELLA-2023OHG017450

PATIENT
  Age: 56 Year
  Sex: Female
  Weight: 75 kg

DRUGS (4)
  1. LEVOCETIRIZINE [Suspect]
     Active Substance: LEVOCETIRIZINE
     Indication: Drug hypersensitivity
     Dosage: 1 DF, QD
     Dates: start: 20231028, end: 2023
  2. LEVOCETIRIZINE [Suspect]
     Active Substance: LEVOCETIRIZINE
     Indication: Off label use
  3. PREDNISOLONE [Suspect]
     Active Substance: PREDNISOLONE
     Dosage: 1 DF, QD
     Dates: start: 20231026
  4. AZITHROMYCIN [Suspect]
     Active Substance: AZITHROMYCIN
     Indication: Pneumonia
     Dosage: 1 DF, QD
     Dates: start: 20231028, end: 20231031

REACTIONS (6)
  - Neuropathy peripheral [Recovering/Resolving]
  - Hot flush [Recovering/Resolving]
  - Abdominal pain [Recovering/Resolving]
  - Hypersensitivity [Recovering/Resolving]
  - Diarrhoea [Not Recovered/Not Resolved]
  - Off label use [Unknown]

NARRATIVE: CASE EVENT DATE: 20230101
